FAERS Safety Report 24766687 (Version 1)
Quarter: 2024Q4

REPORT INFORMATION
  Report Type: Spontaneous
  Country: RO (occurrence: RO)
  Receive Date: 20241223
  Receipt Date: 20241223
  Transmission Date: 20250115
  Serious: Yes (Other)
  Sender: MERCK
  Company Number: RO-AMGEN-ROUSP2024241557

PATIENT
  Age: 75 Year
  Sex: Female

DRUGS (4)
  1. PEMBROLIZUMAB [Suspect]
     Active Substance: PEMBROLIZUMAB
     Indication: Product used for unknown indication
     Dosage: UNK (REDUCE DOSE TO 85% CYCLE 4-CYCLE 6)
     Route: 065
     Dates: start: 202401
  2. PEGFILGRASTIM [Suspect]
     Active Substance: PEGFILGRASTIM
     Indication: Prophylaxis
     Dosage: UNK (3RD ADMINISTRATION)
     Route: 065
     Dates: start: 2024
  3. PEMETREXED [Suspect]
     Active Substance: PEMETREXED
     Indication: Product used for unknown indication
     Dosage: UNK (REDUCE DOSE TO 85% CYCLE 4-CYCLE 6)
     Route: 065
     Dates: start: 202401
  4. CARBOPLATIN [Suspect]
     Active Substance: CARBOPLATIN
     Indication: Product used for unknown indication
     Dosage: UNK (REDUCE DOSE TO 85% CYCLE 4-CYCLE 6)
     Route: 065
     Dates: start: 202401

REACTIONS (3)
  - Neutropenia [Unknown]
  - Hypothyroidism [Unknown]
  - Lung adenocarcinoma [Unknown]

NARRATIVE: CASE EVENT DATE: 20240101
